FAERS Safety Report 9206509 (Version 1)
Quarter: 2013Q2

REPORT INFORMATION
  Report Type: Spontaneous
  Country: GB (occurrence: None)
  Receive Date: 20130401
  Receipt Date: 20130401
  Transmission Date: 20140414
  Serious: Yes (Other)
  Sender: FDA-Public Use
  Company Number: 2013-05641

PATIENT
  Age: 88 Year
  Sex: Female

DRUGS (1)
  1. DOXYCYLINE [Suspect]
     Indication: PRODUCT USED FOR UNKNOWN INDICATION
     Dates: start: 20130306

REACTIONS (1)
  - Vision blurred [None]
